FAERS Safety Report 7715189-6 (Version None)
Quarter: 2011Q3

REPORT INFORMATION
  Report Type: 
  Country: None (occurrence: None)
  Receive Date: 20110810
  Receipt Date: 20110517
  Transmission Date: 20111222
  Serious: No
  Sender: FDA-Public Use
  Company Number: 1000021015

PATIENT
  Age: 56 Year
  Sex: Female

DRUGS (7)
  1. DIOVAN HCT (CO-DIOVAN) (CO-DIOVAN) [Concomitant]
  2. PRILOSEC (OMEPRAZOLE) (OMEPRAZOLE) [Concomitant]
  3. SAVELLA [Suspect]
     Indication: FIBROMYALGIA
     Dosage: 50 MG (25 MG, 2 IN 1 D), ORAL
     Route: 048
     Dates: start: 20110501, end: 20110501
  4. SYMBYAX (OLANZAPINE + FLUOXETINE) (OLANZAPINE + FLUOXETINE) [Concomitant]
  5. NORCO (VICODIN) (VICODIN) [Concomitant]
  6. SAVELLA [Suspect]
     Indication: FIBROMYALGIA
     Dosage: 12.5 MG (12 MG, 1 IN 1 D), ORAL, 25 MG (12.5 MG, 2 IN 1 D). ORAL
     Route: 048
     Dates: start: 20110501, end: 20110501
  7. SAVELLA [Suspect]
     Indication: FIBROMYALGIA
     Dosage: 12.5 MG (12 MG, 1 IN 1 D), ORAL, 25 MG (12.5 MG, 2 IN 1 D). ORAL
     Route: 048
     Dates: start: 20110501, end: 20110501

REACTIONS (3)
  - VOMITING [None]
  - NAUSEA [None]
  - HEADACHE [None]
